FAERS Safety Report 5971785-8 (Version None)
Quarter: 2008Q4

REPORT INFORMATION
  Report Type: 
  Country: None (occurrence: None)
  Receive Date: 20081201
  Receipt Date: 20081114
  Transmission Date: 20090506
  Serious: Yes (Life-Threatening, Hospitalization)
  Sender: FDA-Public Use
  Company Number: JP-BAYER-200831413GPV

PATIENT
  Age: 3 Year
  Sex: Female

DRUGS (3)
  1. NAIXAN [Suspect]
     Indication: JUVENILE ARTHRITIS
     Route: 065
     Dates: start: 20080611, end: 20080613
  2. ANTIBIOTICS [Concomitant]
     Indication: PYREXIA
     Route: 065
     Dates: start: 20080602, end: 20080611
  3. POLYGAM S/D [Concomitant]
     Indication: KAWASAKI'S DISEASE
     Route: 065

REACTIONS (1)
  - HISTIOCYTOSIS HAEMATOPHAGIC [None]
